FAERS Safety Report 24407562 (Version 1)
Quarter: 2024Q4

REPORT INFORMATION
  Report Type: Spontaneous
  Country: FR (occurrence: FR)
  Receive Date: 20241007
  Receipt Date: 20241007
  Transmission Date: 20250115
  Serious: Yes (Death)
  Sender: ELI LILLY AND CO
  Company Number: None

PATIENT
  Age: 80 Year
  Sex: Female

DRUGS (1)
  1. GEMCITABINE HYDROCHLORIDE [Suspect]
     Active Substance: GEMCITABINE HYDROCHLORIDE
     Indication: Adenocarcinoma pancreas
     Dosage: 1390 MG, CYCLICAL (C1)
     Route: 042
     Dates: start: 20240620, end: 20240620

REACTIONS (1)
  - Death [Fatal]

NARRATIVE: CASE EVENT DATE: 20240620
